FAERS Safety Report 5268488-4 (Version None)
Quarter: 2007Q1

REPORT INFORMATION
  Report Type: 
  Country: None (occurrence: None)
  Receive Date: 20061213
  Receipt Date: 20040805
  Transmission Date: 20070707
  Serious: Yes (Other)
  Sender: FDA-Public Use
  Company Number: 2004UW16915

PATIENT
  Sex: Male

DRUGS (4)
  1. IRESSA [Suspect]
     Indication: BONE NEOPLASM MALIGNANT
     Dosage: 250 MG PO
     Route: 048
     Dates: start: 20040804
  2. IRESSA [Suspect]
     Indication: BRAIN NEOPLASM MALIGNANT
     Dosage: 250 MG PO
     Route: 048
     Dates: start: 20040804
  3. IRESSA [Suspect]
     Indication: HEPATIC NEOPLASM MALIGNANT
     Dosage: 250 MG PO
     Route: 048
     Dates: start: 20040804
  4. IRESSA [Suspect]
     Indication: LUNG NEOPLASM MALIGNANT
     Dosage: 250 MG PO
     Route: 048
     Dates: start: 20040804

REACTIONS (2)
  - INSOMNIA [None]
  - OEDEMA PERIPHERAL [None]
